FAERS Safety Report 18039403 (Version 2)
Quarter: 2025Q4

REPORT INFORMATION
  Report Type: Spontaneous
  Country: EU (occurrence: EU)
  Receive Date: 20200718
  Receipt Date: 20251013
  Transmission Date: 20260119
  Serious: Yes (Disabling)
  Sender: AUROBINDO
  Company Number: EU-ACCORD-189847

PATIENT
  Age: 79 Year

DRUGS (3)
  1. LEVOFLOXACIN [Suspect]
     Active Substance: LEVOFLOXACIN
     Indication: Pneumonia
     Dosage: 1000 MILLIGRAM, ONCE A DAY
     Route: 048
  2. PREDNISONE [Concomitant]
     Active Substance: PREDNISONE
     Indication: Pneumonia
     Dosage: UNK
     Route: 065
  3. AMOXICILLIN [Concomitant]
     Active Substance: AMOXICILLIN
     Indication: Pneumonia
     Dosage: UNK
     Route: 065

REACTIONS (1)
  - Pain [Unknown]
